FAERS Safety Report 12191552 (Version 5)
Quarter: 2016Q4

REPORT INFORMATION
  Report Type: Report from Study
  Country: BR (occurrence: BR)
  Receive Date: 20160318
  Receipt Date: 20161201
  Transmission Date: 20170207
  Serious: Yes (Hospitalization, Other)
  Sender: FDA-Public Use
  Company Number: BR-BRISTOL-MYERS SQUIBB COMPANY-BMS-2016-007388

PATIENT
  Sex: Female

DRUGS (4)
  1. BUSCOPAN [Concomitant]
     Active Substance: BUTYLSCOPOLAMINE BROMIDE
     Indication: PRODUCT USED FOR UNKNOWN INDICATION
     Route: 065
  2. ABATACEPT [Suspect]
     Active Substance: ABATACEPT
     Indication: RHEUMATOID ARTHRITIS
     Dosage: UNK, QMO
     Route: 042
  3. TRAMAL [Concomitant]
     Active Substance: TRAMADOL
     Indication: PRODUCT USED FOR UNKNOWN INDICATION
     Route: 065
  4. DIPIRON [Concomitant]
     Indication: PRODUCT USED FOR UNKNOWN INDICATION
     Route: 065

REACTIONS (11)
  - Abdominal pain [Unknown]
  - Renal disorder [Not Recovered/Not Resolved]
  - Headache [Unknown]
  - Aphasia [Not Recovered/Not Resolved]
  - Fatigue [Not Recovered/Not Resolved]
  - Peripheral swelling [Not Recovered/Not Resolved]
  - Abdominal distension [Unknown]
  - Nausea [Unknown]
  - Haemodialysis [Unknown]
  - Swelling face [Unknown]
  - Pain in extremity [Unknown]
